FAERS Safety Report 26074979 (Version 1)
Quarter: 2025Q4

REPORT INFORMATION
  Report Type: Spontaneous
  Country: US (occurrence: None)
  Receive Date: 20251120
  Receipt Date: 20251120
  Transmission Date: 20260117
  Serious: No
  Sender: FDA-CTU
  Company Number: None

PATIENT
  Age: 36 Year
  Sex: Male
  Weight: 76.5 kg

DRUGS (1)
  1. UNAPPROVED DRUG COSMETIC PRODUCTS [Suspect]
     Active Substance: UNAPPROVED DRUG COSMETIC PRODUCTS

REACTIONS (8)
  - Suspected counterfeit product [None]
  - Manufacturing laboratory controls issue [None]
  - Physical product label issue [None]
  - Product formulation issue [None]
  - Renal pain [None]
  - Therapy cessation [None]
  - Product use in unapproved indication [None]
  - Product complaint [None]

NARRATIVE: CASE EVENT DATE: 20250820
